FAERS Safety Report 17132671 (Version 1)
Quarter: 2019Q4

REPORT INFORMATION
  Report Type: Other
  Country: NL (occurrence: NL)
  Receive Date: 20191210
  Receipt Date: 20191210
  Transmission Date: 20200122
  Serious: Yes (Disabling, Congenital Anomaly, Other)
  Sender: FDA-Public Use
  Company Number: NL-APOTEX-2018AP027063

PATIENT
  Sex: Male
  Weight: 2 kg

DRUGS (2)
  1. FENTANYL. [Suspect]
     Active Substance: FENTANYL
     Indication: ABDOMINAL PAIN
     Dosage: OM DE DAG, BID
     Route: 064
  2. OXYCONTIN [Suspect]
     Active Substance: OXYCODONE HYDROCHLORIDE
     Indication: ABDOMINAL PAIN
     Dosage: 2DD, BID
     Route: 064

REACTIONS (3)
  - Talipes [Unknown]
  - Maternal exposure during pregnancy [Unknown]
  - Drug withdrawal syndrome neonatal [Unknown]
